FAERS Safety Report 23930851 (Version 1)
Quarter: 2024Q2

REPORT INFORMATION
  Report Type: Report from Study
  Country: US (occurrence: None)
  Receive Date: 20240603
  Receipt Date: 20240603
  Transmission Date: 20240716
  Serious: Yes (Other)
  Sender: FDA-Public Use
  Company Number: 2024A123188

PATIENT
  Sex: Male
  Weight: 78 kg

DRUGS (1)
  1. CALQUENCE [Suspect]
     Active Substance: ACALABRUTINIB
     Indication: Chronic lymphocytic leukaemia
     Route: 048
     Dates: start: 20240521

REACTIONS (4)
  - Dehydration [Unknown]
  - Yellow skin [Unknown]
  - Decreased appetite [Unknown]
  - Feeling abnormal [Unknown]
